FAERS Safety Report 17640406 (Version 2)
Quarter: 2020Q2

REPORT INFORMATION
  Report Type: Spontaneous
  Country: TW (occurrence: TW)
  Receive Date: 20200407
  Receipt Date: 20200417
  Transmission Date: 20200713
  Serious: Yes (Death, Life-Threatening, Hospitalization)
  Sender: FDA-Public Use
  Company Number: TW-JNJFOC-20200343182

PATIENT
  Age: 62 Year
  Sex: Male
  Weight: 65 kg

DRUGS (1)
  1. SIMPONI [Suspect]
     Active Substance: GOLIMUMAB
     Indication: RHEUMATOID ARTHRITIS
     Route: 058
     Dates: start: 20150328, end: 20200219

REACTIONS (5)
  - Septic shock [Fatal]
  - Atrial fibrillation [Unknown]
  - Coronary artery disease [Unknown]
  - Pneumonia acinetobacter [Fatal]
  - Acute pulmonary oedema [Unknown]

NARRATIVE: CASE EVENT DATE: 202003
